FAERS Safety Report 7627279-7 (Version None)
Quarter: 2011Q3

REPORT INFORMATION
  Report Type: 
  Country: None (occurrence: None)
  Receive Date: 20110721
  Receipt Date: 20110715
  Transmission Date: 20111222
  Serious: Yes (Hospitalization, Other)
  Sender: FDA-Public Use
  Company Number: PHHY2011US13506

PATIENT
  Sex: Female

DRUGS (15)
  1. LUNESTA [Concomitant]
     Dosage: 3 MG, PRN
  2. LEXAPRO [Concomitant]
     Dosage: 20 MG, QD
  3. AMPYRA [Suspect]
  4. NAPROXEN (ALEVE) [Concomitant]
     Dosage: 220 MG, BID
  5. FAMPRIDINE [Interacting]
     Dosage: 10 MG, BID
     Dates: start: 20100721, end: 20110503
  6. ARICEPT [Concomitant]
     Dosage: 5 MG, QD
  7. VITAMIN D [Concomitant]
     Dosage: 1000 U, QD
  8. VESICARE [Concomitant]
  9. LEXAPRO [Concomitant]
     Dosage: 30 MG, QD
  10. CALCIUM W/VITAMIN D NOS [Concomitant]
     Dosage: 2 DF, QD
  11. DONEPEZIL HCL [Concomitant]
     Dosage: UNK
  12. GILENYA [Interacting]
     Indication: MULTIPLE SCLEROSIS
     Dosage: 0.5 MG, QD
     Route: 048
     Dates: start: 20110208, end: 20110629
  13. PROVIGIL [Concomitant]
     Dosage: 200 MG, QD
  14. DETROL [Concomitant]
     Dosage: 4 MG, QD
  15. VITAMIN B-12 [Concomitant]
     Dosage: 400 MG, QD

REACTIONS (8)
  - URINARY TRACT INFECTION [None]
  - UNRESPONSIVE TO STIMULI [None]
  - DRUG INTERACTION [None]
  - CONVULSION [None]
  - GRIMACING [None]
  - SUICIDAL IDEATION [None]
  - MUSCLE SPASMS [None]
  - DEPRESSION [None]
